FAERS Safety Report 5766354-9 (Version None)
Quarter: 2008Q2

REPORT INFORMATION
  Report Type: 
  Country: None (occurrence: None)
  Receive Date: 20080611
  Receipt Date: 20080603
  Transmission Date: 20081010
  Serious: Yes (Hospitalization)
  Sender: FDA-Public Use
  Company Number: JP-AMGEN-US283143

PATIENT
  Sex: Male
  Weight: 48 kg

DRUGS (3)
  1. ENBREL [Suspect]
     Indication: RHEUMATOID ARTHRITIS
     Route: 058
     Dates: start: 20070702, end: 20080228
  2. RHEUMATREX [Suspect]
     Indication: RHEUMATOID ARTHRITIS
     Route: 048
     Dates: start: 20070529, end: 20080514
  3. RIMATIL [Concomitant]
     Indication: RHEUMATOID ARTHRITIS
     Dosage: 3 DF/DAY
     Route: 048
     Dates: start: 20070529, end: 20080514

REACTIONS (2)
  - NASOPHARYNGITIS [None]
  - PNEUMONIA [None]
